FAERS Safety Report 18044209 (Version 3)
Quarter: 2020Q3

REPORT INFORMATION
  Report Type: Spontaneous
  Country: AU (occurrence: AU)
  Receive Date: 20200720
  Receipt Date: 20200826
  Transmission Date: 20201103
  Serious: Yes (Other)
  Sender: FDA-Public Use
  Company Number: AU-NOVOPROD-740765

PATIENT
  Age: 3 Year
  Sex: Female
  Weight: 13.6 kg

DRUGS (1)
  1. NORDITROPIN [Suspect]
     Active Substance: SOMATROPIN
     Indication: CHRONIC KIDNEY DISEASE
     Dosage: 0.66 MG, QD
     Route: 058
     Dates: start: 20190327, end: 20200602

REACTIONS (2)
  - Off label use [Unknown]
  - Hepatoblastoma [Not Recovered/Not Resolved]

NARRATIVE: CASE EVENT DATE: 20190327
